FAERS Safety Report 19441194 (Version 1)
Quarter: 2021Q2

REPORT INFORMATION
  Report Type: Spontaneous
  Country: US (occurrence: US)
  Receive Date: 20210617
  Receipt Date: 20210617
  Transmission Date: 20210717
  Serious: Yes (Hospitalization)
  Sender: FDA-Public Use
  Company Number: None

PATIENT
  Age: 86 Year
  Sex: Female
  Weight: 38 kg

DRUGS (1)
  1. DABIGATRAN [Suspect]
     Active Substance: DABIGATRAN
     Indication: ATRIAL FIBRILLATION
     Route: 048
     Dates: end: 20210425

REACTIONS (5)
  - Shock haemorrhagic [None]
  - Pelvic fracture [None]
  - Hypotension [None]
  - Pelvic haematoma [None]
  - Fall [None]

NARRATIVE: CASE EVENT DATE: 20210425
